FAERS Safety Report 10658593 (Version 1)
Quarter: 2014Q4

REPORT INFORMATION
  Report Type: Spontaneous
  Country: US (occurrence: None)
  Receive Date: 20141205
  Receipt Date: 20141205
  Transmission Date: 20150529
  Serious: Yes (Other)
  Sender: FDA-Public Use
  Company Number: USA-2014095147

PATIENT
  Age: 69 Year
  Sex: Male
  Weight: 92.99 kg

DRUGS (7)
  1. ACTIVAR (GLYCINE, CYANOCOBALAMIN, CALCIUM GLUCONATE, HEMATOPORPHYRIN) [Concomitant]
  2. BIAXIN [Concomitant]
     Active Substance: CLARITHROMYCIN
  3. POMALYST [Suspect]
     Active Substance: POMALIDOMIDE
     Indication: PLASMA CELL MYELOMA
     Route: 048
     Dates: start: 20140207
  4. XARELTO [Concomitant]
     Active Substance: RIVAROXABAN
  5. IRON (IRON) [Concomitant]
     Active Substance: IRON
  6. ASPIRIN (ACETYLSALICYLIC ACID) [Concomitant]
     Active Substance: ASPIRIN
  7. VITAMIN B (VITAMIN B COMPLEX) [Concomitant]

REACTIONS (2)
  - Thrombosis [None]
  - Plasma cell myeloma [None]

NARRATIVE: CASE EVENT DATE: 201408
